FAERS Safety Report 9664902 (Version 6)
Quarter: 2015Q3

REPORT INFORMATION
  Report Type: Report from Study
  Country: JP (occurrence: JP)
  Receive Date: 20131101
  Receipt Date: 20150930
  Transmission Date: 20151125
  Serious: Yes (Death, Other)
  Sender: FDA-Public Use
  Company Number: JP-GLAXOSMITHKLINE-B0938508A

PATIENT
  Age: 62 Year
  Sex: Male
  Weight: 45 kg

DRUGS (11)
  1. ELTROMBOPAG [Suspect]
     Active Substance: ELTROMBOPAG
     Dosage: 37.5 MG, 1D
     Route: 048
     Dates: start: 20120903
  2. ELTROMBOPAG [Suspect]
     Active Substance: ELTROMBOPAG
     Indication: IMMUNE THROMBOCYTOPENIC PURPURA
     Dosage: 12.5 MG, 1D
     Route: 048
     Dates: start: 20111017
  3. RENIVEZE [Concomitant]
     Active Substance: ENALAPRIL MALEATE
     Dosage: 5 MG, 1D
     Dates: end: 20111031
  4. AMLODIPINE [Concomitant]
     Active Substance: AMLODIPINE BESYLATE
     Dosage: 5 MG, 1D
  5. TRADITIONAL CHINESE MEDICINE [Concomitant]
     Active Substance: HERBALS
     Dosage: 7.5 G, 1D
  6. URDESTON [Concomitant]
     Dosage: 300 MG, 1D
  7. NEXIUM [Concomitant]
     Active Substance: ESOMEPRAZOLE MAGNESIUM
     Dosage: 20 MG, 1D
     Dates: start: 20111222, end: 20111225
  8. LANSOPRAZOLE. [Concomitant]
     Active Substance: LANSOPRAZOLE
     Dosage: 15 MG, 1D
     Dates: start: 20111226
  9. OMEPRAL [Concomitant]
     Active Substance: OMEPRAZOLE
     Dosage: 20 MG, 1D
     Dates: end: 20111221
  10. ELTROMBOPAG [Suspect]
     Active Substance: ELTROMBOPAG
     Dosage: 25 MG, 1D
     Route: 048
     Dates: start: 20111031, end: 20120902
  11. AMINOLEBAN EN [Concomitant]
     Active Substance: UNSPECIFIED INGREDIENT
     Dosage: 50 G, 1D
     Dates: start: 20111028, end: 20111103

REACTIONS (1)
  - Myelodysplastic syndrome [Fatal]

NARRATIVE: CASE EVENT DATE: 20111221
